FAERS Safety Report 14803228 (Version 1)
Quarter: 2018Q2

REPORT INFORMATION
  Report Type: Spontaneous
  Country: US (occurrence: US)
  Receive Date: 20180425
  Receipt Date: 20180425
  Transmission Date: 20180711
  Serious: No
  Sender: FDA-Public Use
  Company Number: US-TEVA-2018-US-871310

PATIENT
  Sex: Female

DRUGS (4)
  1. FENTANYL. [Suspect]
     Active Substance: FENTANYL
     Indication: PAIN
     Route: 062
     Dates: start: 2008
  2. FENTANYL. [Suspect]
     Active Substance: FENTANYL
     Route: 062
  3. FENTANYL. [Suspect]
     Active Substance: FENTANYL
     Route: 062
  4. FENTANYL. [Suspect]
     Active Substance: FENTANYL
     Route: 062

REACTIONS (5)
  - Hyperhidrosis [Unknown]
  - Pain [Unknown]
  - Drug ineffective [Unknown]
  - Application site injury [Unknown]
  - Product physical issue [Unknown]

NARRATIVE: CASE EVENT DATE: 20180221
